FAERS Safety Report 4781195-7 (Version None)
Quarter: 2005Q3

REPORT INFORMATION
  Report Type: 
  Country: None (occurrence: None)
  Receive Date: 20050928
  Receipt Date: 20050119
  Transmission Date: 20060218
  Serious: Yes (Hospitalization)
  Sender: FDA-Public Use
  Company Number: 2005SE00348

PATIENT
  Age: 10394 Day
  Sex: Female
  Weight: 62 kg

DRUGS (10)
  1. SEROQUEL [Suspect]
     Indication: SCHIZOAFFECTIVE DISORDER
     Route: 048
     Dates: start: 20041113, end: 20041113
  2. SEROQUEL [Suspect]
     Route: 048
     Dates: start: 20041114, end: 20041114
  3. SEROQUEL [Suspect]
     Route: 048
     Dates: start: 20041115, end: 20041115
  4. SEROQUEL [Suspect]
     Route: 048
     Dates: start: 20041116, end: 20041118
  5. SEROQUEL [Suspect]
     Route: 048
     Dates: start: 20041119, end: 20041121
  6. SEROQUEL [Suspect]
     Route: 048
     Dates: start: 20041122, end: 20050104
  7. BIPERIDEN HYDROCHLORIDE TAB [Concomitant]
     Indication: AKATHISIA
     Dates: start: 20041117, end: 20041206
  8. ZOLPIDEM [Concomitant]
     Indication: INSOMNIA
     Dates: start: 20041117, end: 20041129
  9. DIAZEPAM [Concomitant]
     Indication: ANXIETY
     Dates: start: 20041120, end: 20041121
  10. DIAZEPAM [Concomitant]
     Dates: start: 20041128, end: 20041128

REACTIONS (7)
  - ADVERSE EVENT [None]
  - AKATHISIA [None]
  - ANXIETY [None]
  - DRUG INEFFECTIVE [None]
  - HALLUCINATION [None]
  - INSOMNIA [None]
  - SCHIZOAFFECTIVE DISORDER [None]
